FAERS Safety Report 25715912 (Version 2)
Quarter: 2025Q3

REPORT INFORMATION
  Report Type: Report from Study
  Country: US (occurrence: US)
  Receive Date: 20250822
  Receipt Date: 20250922
  Transmission Date: 20251021
  Serious: No
  Sender: SANDOZ
  Company Number: US-SANDOZ-SDZ2025US060004

PATIENT
  Sex: Female

DRUGS (2)
  1. OMNITROPE [Suspect]
     Active Substance: SOMATROPIN
     Indication: Product used for unknown indication
     Dosage: 1.3 MG, QD, STRENGTH-10 MG / 1.5 ML
     Route: 058
     Dates: start: 20250808
  2. OMNITROPE [Suspect]
     Active Substance: SOMATROPIN
     Indication: Product used for unknown indication
     Dosage: 1.3 MG, QD, STRENGTH-10 MG / 1.5 ML
     Route: 058
     Dates: start: 20250808

REACTIONS (3)
  - Poor quality device used [Unknown]
  - Incorrect dose administered by device [Unknown]
  - Needle issue [Unknown]
